FAERS Safety Report 12298493 (Version 1)
Quarter: 2016Q2

REPORT INFORMATION
  Report Type: Spontaneous
  Country: FR (occurrence: FR)
  Receive Date: 20160425
  Receipt Date: 20160425
  Transmission Date: 20160815
  Serious: Yes (Life-Threatening, Hospitalization)
  Sender: FDA-Public Use
  Company Number: FR-ROCHE-1744536

PATIENT
  Age: 29 Year
  Sex: Female

DRUGS (7)
  1. VALIUM [Suspect]
     Active Substance: DIAZEPAM
     Indication: PRODUCT USED FOR UNKNOWN INDICATION
     Dosage: SINGLE ADMINISTRATION
     Route: 048
     Dates: start: 20150831, end: 20150831
  2. ANAFRANIL [Suspect]
     Active Substance: CLOMIPRAMINE HYDROCHLORIDE
     Route: 048
  3. VALIUM [Suspect]
     Active Substance: DIAZEPAM
     Route: 048
  4. ZOPICLONE [Suspect]
     Active Substance: ZOPICLONE
     Route: 048
  5. XEROQUEL [Suspect]
     Active Substance: QUETIAPINE FUMARATE
     Indication: PRODUCT USED FOR UNKNOWN INDICATION
     Dosage: SINGLE ADMINISTRATION
     Route: 048
     Dates: start: 20150831, end: 20150831
  6. ANAFRANIL [Suspect]
     Active Substance: CLOMIPRAMINE HYDROCHLORIDE
     Indication: PRODUCT USED FOR UNKNOWN INDICATION
     Dosage: SINGLE ADMINISTRATION
     Route: 048
     Dates: start: 20150831, end: 20150831
  7. ZOPICLONE [Suspect]
     Active Substance: ZOPICLONE
     Indication: PRODUCT USED FOR UNKNOWN INDICATION
     Dosage: SINGLE ADMINISTRATION
     Route: 048
     Dates: start: 20150831, end: 20150831

REACTIONS (3)
  - Hypertension [Recovered/Resolved]
  - Toxicity to various agents [Recovered/Resolved]
  - Coma [Recovered/Resolved]

NARRATIVE: CASE EVENT DATE: 20150831
